FAERS Safety Report 8654348 (Version 2)
Quarter: 2013Q4

REPORT INFORMATION
  Report Type: Spontaneous
  Country: PH (occurrence: PH)
  Receive Date: 20120709
  Receipt Date: 20131105
  Transmission Date: 20140711
  Serious: Yes (Death, Other)
  Sender: FDA-Public Use
  Company Number: PH-MERCK-1207USA00154

PATIENT
  Age: 41 Year
  Sex: Female

DRUGS (1)
  1. JANUVIA [Suspect]
     Dosage: 25 MG, QD
     Route: 048

REACTIONS (1)
  - Cardiac arrest [Fatal]
